FAERS Safety Report 21652706 (Version 1)
Quarter: 2022Q4

REPORT INFORMATION
  Report Type: Spontaneous
  Country: US (occurrence: None)
  Receive Date: 20221128
  Receipt Date: 20221128
  Transmission Date: 20230113
  Serious: Yes (Other)
  Sender: FDA-Public Use
  Company Number: US-FARMAPROD-202211-2326

PATIENT
  Sex: Female

DRUGS (12)
  1. OXERVATE [Suspect]
     Active Substance: CENEGERMIN-BKBJ
     Indication: Neurotrophic keratopathy
     Route: 047
     Dates: start: 20221011
  2. ARMOUR THYROID [Concomitant]
     Active Substance: THYROID, PORCINE
  3. OMEGA 3 - 6 - 9 [Concomitant]
  4. METOPROLOL SUCCINATE [Concomitant]
     Active Substance: METOPROLOL SUCCINATE
  5. LANTUS [Concomitant]
     Active Substance: INSULIN GLARGINE
     Dosage: VIAL
  6. ELIQUIS [Concomitant]
     Active Substance: APIXABAN
  7. FLUTICASONE PROPIONATE [Concomitant]
     Active Substance: FLUTICASONE PROPIONATE
     Dosage: SUSPENSION
  8. FAMOTIDINE [Concomitant]
     Active Substance: FAMOTIDINE
  9. LISINOPRIL [Concomitant]
     Active Substance: LISINOPRIL
  10. IPRATROPIUM BROMIDE [Concomitant]
     Active Substance: IPRATROPIUM BROMIDE
  11. CLOPIDOGREL [Concomitant]
     Active Substance: CLOPIDOGREL BISULFATE
  12. OASIS PLUS [Concomitant]

REACTIONS (2)
  - Pneumonia [Unknown]
  - Drug ineffective [Unknown]
